FAERS Safety Report 19873228 (Version 2)
Quarter: 2021Q4

REPORT INFORMATION
  Report Type: Spontaneous
  Country: UY (occurrence: UY)
  Receive Date: 20210923
  Receipt Date: 20211026
  Transmission Date: 20220303
  Serious: No
  Sender: FDA-Public Use
  Company Number: UY-PFIZER INC-202101181486

PATIENT
  Age: 14 Year
  Sex: Female

DRUGS (1)
  1. GENOTROPIN [Suspect]
     Active Substance: SOMATROPIN
     Indication: Body height below normal
     Dosage: 1 TO 1.4 MG, DAILY, 7 DAYS
     Dates: start: 20210531

REACTIONS (2)
  - Device occlusion [Unknown]
  - Poor quality device used [Unknown]
